FAERS Safety Report 17173784 (Version 5)
Quarter: 2021Q4

REPORT INFORMATION
  Report Type: Spontaneous
  Country: US (occurrence: US)
  Receive Date: 20191219
  Receipt Date: 20211202
  Transmission Date: 20220303
  Serious: Yes (Other)
  Sender: FDA-Public Use
  Company Number: US-PFIZER INC-2019544026

PATIENT
  Age: 75 Year
  Sex: Female

DRUGS (1)
  1. XELJANZ XR [Suspect]
     Active Substance: TOFACITINIB CITRATE
     Dosage: 11 MG

REACTIONS (8)
  - Cerebrovascular accident [Unknown]
  - Arthritis [Unknown]
  - Arthralgia [Unknown]
  - Gait inability [Unknown]
  - Memory impairment [Unknown]
  - Anxiety [Unknown]
  - Nervousness [Unknown]
  - Cerebral disorder [Unknown]
